FAERS Safety Report 7510120-0 (Version None)
Quarter: 2011Q2

REPORT INFORMATION
  Report Type: 
  Country: None (occurrence: None)
  Receive Date: 20110527
  Receipt Date: 20110526
  Transmission Date: 20111010
  Serious: Yes (Life-Threatening, Hospitalization)
  Sender: FDA-Public Use
  Company Number: US-B.I. PHARMACEUTICALS,INC./RIDGEFIELD-2011-BP-05792BP

PATIENT
  Age: 85 Year
  Sex: Female

DRUGS (5)
  1. OLMESARTAN MEDOXOMIL [Concomitant]
  2. FERROUS SULFATE TAB [Concomitant]
  3. TORSEMIDE [Concomitant]
  4. PRADAXA [Suspect]
     Indication: ATRIAL FIBRILLATION
     Dosage: 150 MG
     Route: 048
     Dates: end: 20110301
  5. OXYCODONE HCL [Concomitant]

REACTIONS (4)
  - RECTAL HAEMORRHAGE [None]
  - COLITIS [None]
  - GASTRITIS [None]
  - HAEMOGLOBIN DECREASED [None]
